FAERS Safety Report 18942051 (Version 3)
Quarter: 2021Q4

REPORT INFORMATION
  Report Type: Report from Study
  Country: US (occurrence: US)
  Receive Date: 20210225
  Receipt Date: 20211019
  Transmission Date: 20220304
  Serious: Yes (Hospitalization, Other)
  Sender: FDA-Public Use
  Company Number: US-INCYTE CORPORATION-2021IN001228

PATIENT

DRUGS (2)
  1. JAKAFI [Suspect]
     Active Substance: RUXOLITINIB
     Indication: Myelofibrosis
     Dosage: 10 MILLIGRAM (TWO 5 MG TABLETS), BID
     Route: 048
     Dates: start: 20200822, end: 20211013
  2. JAKAFI [Suspect]
     Active Substance: RUXOLITINIB
     Dosage: 10 MILLIGRAM, BID
     Route: 048

REACTIONS (7)
  - COVID-19 [Recovering/Resolving]
  - Haemoglobin decreased [Not Recovered/Not Resolved]
  - Fall [Recovering/Resolving]
  - Patella fracture [Recovering/Resolving]
  - Rib fracture [Recovering/Resolving]
  - Eye contusion [Unknown]
  - Therapeutic response unexpected [Unknown]

NARRATIVE: CASE EVENT DATE: 20210101
